FAERS Safety Report 20566422 (Version 1)
Quarter: 2022Q1

REPORT INFORMATION
  Report Type: Spontaneous
  Country: DE (occurrence: DE)
  Receive Date: 20220308
  Receipt Date: 20220308
  Transmission Date: 20220423
  Serious: Yes (Other)
  Sender: FDA-Public Use
  Company Number: None

PATIENT
  Age: 41 Year
  Sex: Male

DRUGS (1)
  1. MIRTAZAPINE [Suspect]
     Active Substance: MIRTAZAPINE
     Indication: Product used for unknown indication
     Dosage: UNK (TRYING TO WEAN OFF FOR 2 YEARS, 1 MG EVERY 4-6 WEEKS)

REACTIONS (4)
  - Drug dependence [Unknown]
  - Muscle spasms [Unknown]
  - Dysuria [Unknown]
  - Impaired quality of life [Unknown]
